FAERS Safety Report 9181532 (Version 1)
Quarter: 2013Q1

REPORT INFORMATION
  Report Type: Report from Study
  Country: CA (occurrence: CA)
  Receive Date: 20130322
  Receipt Date: 20130322
  Transmission Date: 20140127
  Serious: Yes (Other)
  Sender: FDA-Public Use
  Company Number: CA-JNJFOC-20130307759

PATIENT
  Age: 27 None
  Sex: Female
  Weight: 210 kg

DRUGS (4)
  1. REMICADE [Suspect]
     Indication: CROHN^S DISEASE
     Route: 042
     Dates: start: 20100728
  2. IMURAN [Concomitant]
  3. AZATHIOPRINE [Concomitant]
  4. CELEXA [Concomitant]

REACTIONS (2)
  - Viral infection [Recovering/Resolving]
  - Rib fracture [Recovering/Resolving]
